FAERS Safety Report 12835321 (Version 3)
Quarter: 2016Q4

REPORT INFORMATION
  Report Type: Report from Study
  Country: US (occurrence: US)
  Receive Date: 20161011
  Receipt Date: 20161024
  Transmission Date: 20170207
  Serious: Yes (Hospitalization, Other)
  Sender: FDA-Public Use
  Company Number: US-BEH-2016073947

PATIENT
  Age: 58 Year
  Sex: Female
  Weight: 117.91 kg

DRUGS (2)
  1. HORMONES AND RELATED AGENTS [Suspect]
     Active Substance: UNSPECIFIED INGREDIENT
     Indication: MENSTRUATION NORMAL
     Dosage: 20 MG, UNK
     Route: 065
     Dates: start: 201606
  2. BERINERT [Suspect]
     Active Substance: HUMAN C1-ESTERASE INHIBITOR
     Indication: HEREDITARY ANGIOEDEMA
     Dosage: 2000 IU, PRN
     Route: 042
     Dates: start: 2009

REACTIONS (6)
  - Dizziness [Unknown]
  - Dyspnoea [Unknown]
  - Menorrhagia [Unknown]
  - Asthenia [Unknown]
  - Pulmonary thrombosis [Unknown]
  - Thrombosis [Unknown]

NARRATIVE: CASE EVENT DATE: 201606
